FAERS Safety Report 15751166 (Version 1)
Quarter: 2018Q4

REPORT INFORMATION
  Report Type: Spontaneous
  Country: US (occurrence: US)
  Receive Date: 20181221
  Receipt Date: 20181221
  Transmission Date: 20190205
  Serious: No
  Sender: FDA-Public Use
  Company Number: US-THERAPEUTICSMD-2018TMD00260

PATIENT
  Age: 62 Year
  Sex: Female
  Weight: 54.42 kg

DRUGS (6)
  1. REPATHA [Concomitant]
     Active Substance: EVOLOCUMAB
     Dosage: UNK, EVERY 4 WEEKS
  2. IMVEXXY [Suspect]
     Active Substance: ESTRADIOL
     Indication: VULVOVAGINAL DRYNESS
     Dosage: 10 ?G, 1X/DAY; IN THE MORNING
     Route: 067
     Dates: start: 20180917, end: 20180930
  3. CRESTOR [Concomitant]
     Active Substance: ROSUVASTATIN CALCIUM
  4. NIFEDIPINE. [Concomitant]
     Active Substance: NIFEDIPINE
  5. ZETIA [Concomitant]
     Active Substance: EZETIMIBE
  6. IMVEXXY [Suspect]
     Active Substance: ESTRADIOL
     Dosage: 10 ?G, 2X/WEEK IN THE MORNING (MONDAYS AND THURSDAYS)
     Route: 067
     Dates: start: 2018, end: 20181008

REACTIONS (2)
  - Blood pressure increased [Recovered/Resolved]
  - Off label use [Recovered/Resolved]

NARRATIVE: CASE EVENT DATE: 201809
